FAERS Safety Report 5824206-X (Version None)
Quarter: 2008Q3

REPORT INFORMATION
  Report Type: 
  Country: None (occurrence: None)
  Receive Date: 20080718
  Receipt Date: 20080610
  Transmission Date: 20090109
  Serious: Yes (Other)
  Sender: FDA-Public Use
  Company Number: US-WYE-H04434808

PATIENT
  Age: 84 Year
  Sex: Female
  Weight: 56.75 kg

DRUGS (2)
  1. ADVIL PM [Suspect]
     Indication: INSOMNIA
     Dosage: 2 CAPSULE 1X PER 1 DAY, ORAL
     Route: 048
     Dates: start: 20080608, end: 20080608
  2. ADVIL PM [Suspect]
     Indication: PAIN
     Dosage: 2 CAPSULE 1X PER 1 DAY, ORAL
     Route: 048
     Dates: start: 20080608, end: 20080608

REACTIONS (3)
  - FEELING ABNORMAL [None]
  - MALAISE [None]
  - SENSATION OF HEAVINESS [None]
